FAERS Safety Report 22913027 (Version 2)
Quarter: 2023Q4

REPORT INFORMATION
  Report Type: Report from Study
  Country: ZA (occurrence: ZA)
  Receive Date: 20230906
  Receipt Date: 20231014
  Transmission Date: 20240110
  Serious: Yes (Death, Other)
  Sender: FDA-Public Use
  Company Number: ZA-TAKEDA-2023TUS086391

PATIENT
  Sex: Male

DRUGS (2)
  1. PONATINIB [Suspect]
     Active Substance: PONATINIB
     Indication: Acute myeloid leukaemia
     Dosage: UNK
     Route: 065
  2. PONATINIB [Suspect]
     Active Substance: PONATINIB
     Dosage: 15 MILLIGRAM, Q3WEEKS
     Route: 065

REACTIONS (5)
  - Acute myeloid leukaemia [Fatal]
  - Cytopenia [Unknown]
  - Haemorrhage intracranial [Unknown]
  - Full blood count abnormal [Unknown]
  - Jaundice [Unknown]
